FAERS Safety Report 8852816 (Version 3)
Quarter: 2012Q4

REPORT INFORMATION
  Report Type: 
  Country: FR (occurrence: FR)
  Receive Date: 20121022
  Receipt Date: 20121101
  Transmission Date: 20130627
  Serious: Yes (Hospitalization)
  Sender: FDA-Public Use
  Company Number: PHHO2012FR015176

PATIENT
  Age: 34 Year
  Sex: Male
  Weight: 68 kg

DRUGS (4)
  1. AFINITOR [Suspect]
     Indication: NEUROFIBROMATOSIS
     Dosage: 10 mg, QD
     Route: 048
     Dates: start: 20120510
  2. LYRICA [Concomitant]
     Indication: PAIN
     Dosage: 600 mg, QD
     Route: 048
     Dates: start: 20111013
  3. ELISOR [Concomitant]
     Indication: HYPERCHOLESTEROLAEMIA
     Dosage: 20 mg, QD
     Route: 048
     Dates: start: 20120911
  4. IXPRIM [Concomitant]
     Indication: PAIN
     Dosage: 6 DF, QD
     Dates: start: 20121013

REACTIONS (1)
  - Superinfection [Recovering/Resolving]
